FAERS Safety Report 5503218-X (Version None)
Quarter: 2007Q4

REPORT INFORMATION
  Report Type: 
  Country: None (occurrence: None)
  Receive Date: 20071031
  Receipt Date: 20071022
  Transmission Date: 20080405
  Serious: Yes (Hospitalization, Other)
  Sender: FDA-Public Use
  Company Number: US-PFIZER INC-2007044113

PATIENT
  Sex: Male
  Weight: 86.2 kg

DRUGS (2)
  1. CELEBREX [Suspect]
     Indication: ARTHRITIS
  2. CELEBREX [Suspect]
     Indication: BLOOD PRESSURE

REACTIONS (3)
  - CEREBRAL HAEMORRHAGE [None]
  - INSOMNIA [None]
  - PAIN IN EXTREMITY [None]
